FAERS Safety Report 10793136 (Version 1)
Quarter: 2015Q1

REPORT INFORMATION
  Report Type: Spontaneous
  Country: US (occurrence: US)
  Receive Date: 20150213
  Receipt Date: 20150213
  Transmission Date: 20150721
  Serious: Yes (Hospitalization)
  Sender: FDA-Public Use
  Company Number: US-ELI_LILLY_AND_COMPANY-US201502000616

PATIENT
  Sex: Female

DRUGS (1)
  1. STRATTERA [Suspect]
     Active Substance: ATOMOXETINE HYDROCHLORIDE
     Indication: PRODUCT USED FOR UNKNOWN INDICATION
     Dosage: 50 MG, UNKNOWN
     Route: 065

REACTIONS (3)
  - Dizziness [Not Recovered/Not Resolved]
  - Poor peripheral circulation [Not Recovered/Not Resolved]
  - Hypertension [Not Recovered/Not Resolved]
